FAERS Safety Report 7208032-5 (Version None)
Quarter: 2011Q1

REPORT INFORMATION
  Report Type: 
  Country: None (occurrence: None)
  Receive Date: 20110104
  Receipt Date: 20101223
  Transmission Date: 20110831
  Serious: No
  Sender: FDA-Public Use
  Company Number: US-PFIZER INC-2010139645

PATIENT
  Sex: Female

DRUGS (1)
  1. LIPITOR [Suspect]
     Dosage: 40 MG, UNK

REACTIONS (4)
  - HEPATIC STEATOSIS [None]
  - GASTRIC DISORDER [None]
  - HEPATIC FUNCTION ABNORMAL [None]
  - ABDOMINAL DISCOMFORT [None]
